FAERS Safety Report 11201325 (Version 1)
Quarter: 2015Q2

REPORT INFORMATION
  Report Type: Spontaneous
  Country: US (occurrence: None)
  Receive Date: 20150617
  Receipt Date: 20150617
  Transmission Date: 20150821
  Serious: Yes (Other)
  Sender: FDA-Public Use
  Company Number: None

PATIENT
  Age: 60 Year
  Sex: Male
  Weight: 196.86 kg

DRUGS (1)
  1. MULTIHANCE [Suspect]
     Active Substance: GADOBENATE DIMEGLUMINE
     Indication: HEPATOCELLULAR CARCINOMA
     Route: 042
     Dates: start: 20150616

REACTIONS (1)
  - Urticaria [None]

NARRATIVE: CASE EVENT DATE: 20150616
